FAERS Safety Report 8443801-5 (Version None)
Quarter: 2012Q2

REPORT INFORMATION
  Report Type: 
  Country: None (occurrence: None)
  Receive Date: 20120618
  Receipt Date: 20120614
  Transmission Date: 20120825
  Serious: No
  Sender: FDA-Public Use
  Company Number: US-PFIZER INC-2012144456

PATIENT
  Sex: Male
  Weight: 102 kg

DRUGS (13)
  1. FENTANYL [Suspect]
     Indication: PAIN
     Dosage: 100 UG TWO PATCH EVERY TWO DAYS
     Route: 062
  2. DIAZEPAM [Concomitant]
     Indication: BACK DISORDER
  3. TAMSULOSIN HYDROCHLORIDE [Concomitant]
     Indication: DYSURIA
     Dosage: 0.4 MG, DAILY,AT NIGHT
  4. AMLODIPINE BESYLATE [Suspect]
     Indication: HYPERTENSION
     Dosage: 10 MG, DAILY
     Dates: start: 20111101
  5. MORPHINE SULFATE [Suspect]
     Indication: PAIN
     Dosage: 100MG TWO TIMES A DAY WITH 30MG DAILY
  6. METFORMIN [Concomitant]
     Indication: DIABETES MELLITUS
     Dosage: ONE QUARTER OF 500MG TABLET ORALLY ONE IN THE MORNING AND ONE IN THE EVENING,
     Route: 048
  7. CHANTIX [Suspect]
     Dosage: UNK, DAILY
     Route: 048
     Dates: start: 20120101
  8. AMBIEN [Suspect]
     Indication: SLEEP DISORDER
     Dosage: UNK
  9. CHANTIX [Suspect]
     Indication: SMOKING CESSATION THERAPY
     Dosage: 0.5 MG, DAILY
     Route: 048
     Dates: start: 20120610, end: 20120101
  10. DIAZEPAM [Concomitant]
     Indication: ANXIETY
     Dosage: 5 MG, DAILY
  11. CHANTIX [Suspect]
     Dosage: UNK, 2X/DAY
     Route: 048
     Dates: start: 20120101, end: 20120101
  12. LISINOPRIL [Concomitant]
     Indication: HYPERTENSION
     Dosage: 20 MG, DAILY
  13. HYDROCODONE BITARTRATE AND ACETAMINOPHEN [Concomitant]
     Indication: ARTHRALGIA
     Dosage: 10/325, AS NEEDED

REACTIONS (6)
  - BLOOD PRESSURE INCREASED [None]
  - SOMNOLENCE [None]
  - TINNITUS [None]
  - ASTHENIA [None]
  - POOR QUALITY SLEEP [None]
  - DRUG INEFFECTIVE [None]
